FAERS Safety Report 4825550-5 (Version None)
Quarter: 2005Q4

REPORT INFORMATION
  Report Type: 
  Country: None (occurrence: None)
  Receive Date: 20051111
  Receipt Date: 20050831
  Transmission Date: 20060501
  Serious: No
  Sender: FDA-Public Use
  Company Number: US-GLAXOSMITHKLINE-A0572564A

PATIENT
  Age: 84 Year
  Sex: Male

DRUGS (10)
  1. AVODART [Suspect]
     Dosage: .5MG PER DAY
     Route: 048
     Dates: start: 20041229, end: 20050701
  2. FLOMAX [Concomitant]
  3. EXELON [Concomitant]
  4. NAMENDA [Concomitant]
  5. ZOLOFT [Concomitant]
  6. SEROQUEL [Concomitant]
  7. LORATADINE [Concomitant]
  8. LOTREL [Concomitant]
  9. PREDNISONE [Concomitant]
  10. CRYOPRECIPITATED AHF [Concomitant]

REACTIONS (1)
  - GYNAECOMASTIA [None]
